FAERS Safety Report 19675859 (Version 5)
Quarter: 2021Q4

REPORT INFORMATION
  Report Type: Spontaneous
  Country: US (occurrence: US)
  Receive Date: 20210809
  Receipt Date: 20211103
  Transmission Date: 20220304
  Serious: No
  Sender: FDA-Public Use
  Company Number: US-ELI_LILLY_AND_COMPANY-US202108003417

PATIENT
  Sex: Female

DRUGS (2)
  1. TALTZ [Suspect]
     Active Substance: IXEKIZUMAB
     Indication: Psoriatic arthropathy
     Dosage: 160 MG, OTHER (LOADING DOSE)
     Route: 065
  2. TALTZ [Suspect]
     Active Substance: IXEKIZUMAB
     Dosage: 80 MG, UNKNOWN
     Route: 065

REACTIONS (8)
  - Drug hypersensitivity [Unknown]
  - Injection site urticaria [Recovered/Resolved]
  - Injection site mass [Unknown]
  - Injection site reaction [Unknown]
  - Injection site inflammation [Unknown]
  - Injection site warmth [Unknown]
  - Injection site pain [Unknown]
  - Incorrect dose administered [Unknown]
